FAERS Safety Report 9788651 (Version 1)
Quarter: 2013Q4

REPORT INFORMATION
  Report Type: Spontaneous
  Country: DE (occurrence: IT)
  Receive Date: 20131230
  Receipt Date: 20131230
  Transmission Date: 20140711
  Serious: Yes (Hospitalization)
  Sender: FDA-Public Use
  Company Number: IT-FRI-1000052481

PATIENT
  Age: 72 Year
  Sex: Male

DRUGS (4)
  1. MEMANTINE [Suspect]
     Dosage: 5 MG
     Route: 048
     Dates: start: 20130210, end: 20130906
  2. PIRACETAM [Concomitant]
     Dosage: 1200 MG
     Route: 048
  3. ACETYLSALICYLIC ACID [Concomitant]
     Dosage: 100 MG
     Route: 048
  4. FOLINA [Concomitant]
     Dosage: 5 MG
     Route: 048

REACTIONS (1)
  - Pancreatitis [Recovered/Resolved]
